FAERS Safety Report 7291814-1 (Version None)
Quarter: 2011Q1

REPORT INFORMATION
  Report Type: 
  Country: None (occurrence: None)
  Receive Date: 20110214
  Receipt Date: 20110204
  Transmission Date: 20110831
  Serious: Yes (Hospitalization)
  Sender: FDA-Public Use
  Company Number: PHHY2011JP06758

PATIENT
  Age: 61 Year
  Sex: Female

DRUGS (1)
  1. ZOMETA [Suspect]
     Route: 041

REACTIONS (5)
  - EXOSTOSIS [None]
  - FALL [None]
  - PAIN [None]
  - FEMUR FRACTURE [None]
  - OSTEOSCLEROSIS [None]
